FAERS Safety Report 4317848-4 (Version None)
Quarter: 2004Q1

REPORT INFORMATION
  Report Type: 
  Country: None (occurrence: None)
  Receive Date: 20040316
  Receipt Date: 20040218
  Transmission Date: 20041129
  Serious: Yes (Death)
  Sender: FDA-Public Use
  Company Number: 200410479JP

PATIENT
  Age: 70 Year
  Sex: Female
  Weight: 56.8 kg

DRUGS (7)
  1. BENAMBAX [Suspect]
     Indication: PNEUMOCYSTIS CARINII PNEUMONIA
     Route: 055
     Dates: start: 20040208, end: 20040213
  2. SOLU-MEDROL [Suspect]
     Indication: INTERSTITIAL LUNG DISEASE
     Route: 041
     Dates: start: 20040208, end: 20040211
  3. LASIX [Suspect]
     Indication: OLIGURIA
     Route: 042
     Dates: start: 20040211, end: 20040215
  4. SOLDACTONE [Concomitant]
     Indication: OLIGURIA
     Route: 042
     Dates: start: 20040213, end: 20040215
  5. DIPRIVAN [Concomitant]
     Indication: SEDATIVE THERAPY
     Route: 042
  6. TIENAM [Concomitant]
     Indication: PNEUMONIA
     Route: 041
     Dates: start: 20040206
  7. DIFLUCAN [Concomitant]
     Indication: PNEUMONIA
     Route: 041
     Dates: start: 20040210

REACTIONS (8)
  - BLOOD GLUCOSE INCREASED [None]
  - C-REACTIVE PROTEIN INCREASED [None]
  - INTESTINAL HAEMORRHAGE [None]
  - PANCREATIC ENLARGEMENT [None]
  - PANCREATIC NECROSIS [None]
  - PANCREATITIS HAEMORRHAGIC [None]
  - PERITONITIS [None]
  - VENTRICULAR TACHYCARDIA [None]
